FAERS Safety Report 4894746-9 (Version None)
Quarter: 2006Q1

REPORT INFORMATION
  Report Type: 
  Country: None (occurrence: None)
  Receive Date: 20060130
  Receipt Date: 20060120
  Transmission Date: 20060701
  Serious: Yes (Other)
  Sender: FDA-Public Use
  Company Number: US-JNJFOC-20051104870

PATIENT
  Sex: Male
  Weight: 67.59 kg

DRUGS (5)
  1. REMICADE [Suspect]
     Indication: CROHN'S DISEASE
     Route: 042
  2. 6MP [Suspect]
     Indication: CROHN'S DISEASE
     Route: 048
  3. ENTOCORT [Concomitant]
  4. UROCET [Concomitant]
     Indication: PROPHYLAXIS
  5. FOSAMAX [Concomitant]

REACTIONS (3)
  - BASAL CELL CARCINOMA [None]
  - HYPERKERATOSIS [None]
  - SQUAMOUS CELL CARCINOMA OF SKIN [None]
